FAERS Safety Report 13739570 (Version 1)
Quarter: 2017Q3

REPORT INFORMATION
  Report Type: Spontaneous
  Country: BR (occurrence: BR)
  Receive Date: 20170710
  Receipt Date: 20170710
  Transmission Date: 20171127
  Serious: Yes (Death, Hospitalization)
  Sender: FDA-Public Use
  Company Number: PHHY2013BR026937

PATIENT
  Age: 75 Year
  Sex: Female
  Weight: 45 kg

DRUGS (1)
  1. HYDERGINE [Suspect]
     Active Substance: ERGOLOID MESYLATES
     Indication: SYSTEMIC SCLERODERMA
     Dosage: 1 DF, (1MG/30ML, FULL BILL DROP PER DAY)
     Route: 048

REACTIONS (1)
  - Urinary tract infection [Fatal]
